FAERS Safety Report 7399671 (Version 4)
Quarter: 2013Q3

REPORT INFORMATION
  Report Type: Report from Study
  Country: GB (occurrence: GB)
  Receive Date: 20100526
  Receipt Date: 20130731
  Transmission Date: 20140515
  Serious: Yes (Death, Hospitalization)
  Sender: FDA-Public Use
  Company Number: GB-CELGENEUS-167-50794-10051955

PATIENT
  Age: 69 Year
  Sex: Female

DRUGS (21)
  1. VIDAZA [Suspect]
     Indication: MYELODYSPLASTIC SYNDROME
     Dosage: 121.5 MILLIGRAM
     Route: 065
     Dates: start: 20081201
  2. VIDAZA [Suspect]
     Dosage: 112 MILLIGRAM
     Route: 065
     Dates: start: 20090722, end: 20090728
  3. VIDAZA [Suspect]
     Dosage: 123 MILLIGRAM
     Route: 065
  4. VIDAZA [Suspect]
     Dosage: 115 MILLIGRAM
     Route: 065
  5. VIDAZA [Suspect]
     Dosage: 110 MILLIGRAM
     Route: 065
  6. VIDAZA [Suspect]
     Route: 065
     Dates: start: 20090722, end: 20090728
  7. G-CSF [Concomitant]
     Indication: NEUTROPHIL COUNT DECREASED
     Route: 050
     Dates: end: 20090823
  8. ACICLOVIR [Concomitant]
     Indication: INFECTION PROPHYLAXIS
     Dosage: 600 MILLIGRAM
     Route: 048
     Dates: start: 2009, end: 20090824
  9. OMEPRAZOLE [Concomitant]
     Indication: GASTRITIS PROPHYLAXIS
     Dosage: 40 MILLIGRAM
     Route: 048
     Dates: start: 20090327, end: 20090823
  10. VORICONAZOLE [Concomitant]
     Indication: INFECTION PROPHYLAXIS
     Dosage: 400 MILLIGRAM
     Route: 048
     Dates: start: 200904, end: 20090823
  11. TRANEXAMIC ACID [Concomitant]
     Indication: HAEMORRHAGE PROPHYLAXIS
     Dosage: 1500 MILLIGRAM
     Route: 048
     Dates: start: 20090624, end: 20090823
  12. CIPROFLOXACIN [Concomitant]
     Indication: INFECTION PROPHYLAXIS
     Dosage: 1000 MILLIGRAM
     Route: 048
     Dates: start: 200902, end: 20090821
  13. CIPROFLOXACIN [Concomitant]
     Indication: SINUS DISORDER
  14. ONDANSETRON [Concomitant]
     Indication: PROPHYLAXIS OF NAUSEA AND VOMITING
     Dosage: 16 MILLIGRAM
     Route: 048
     Dates: start: 20090624, end: 20090824
  15. PARACETAMOL [Concomitant]
     Indication: ANALGESIC THERAPY
     Route: 048
     Dates: start: 20090626, end: 20090825
  16. CHLORHEXIDINE GLUCONATE [Concomitant]
     Indication: PROPHYLAXIS
     Route: 048
     Dates: start: 2009, end: 2009
  17. NYSTATIN [Concomitant]
     Indication: PROPHYLAXIS
     Route: 048
     Dates: start: 2009, end: 2009
  18. SERETIDE [Concomitant]
     Indication: ASTHMA
     Route: 055
     Dates: end: 200908
  19. CALCICHEW D3 [Concomitant]
     Indication: PROPHYLAXIS
     Route: 065
     Dates: start: 2008, end: 2009
  20. TRAMADOL [Concomitant]
     Indication: SINUS HEADACHE
     Route: 065
     Dates: start: 200812, end: 2009
  21. TRAMADOL [Concomitant]
     Indication: ANALGESIC THERAPY
     Route: 065
     Dates: start: 20090824, end: 20090824

REACTIONS (3)
  - Pancytopenia [Fatal]
  - Multi-organ failure [Fatal]
  - Pneumonia [Fatal]
